FAERS Safety Report 24827049 (Version 2)
Quarter: 2025Q4

REPORT INFORMATION
  Report Type: Spontaneous
  Country: CA (occurrence: CA)
  Receive Date: 20250109
  Receipt Date: 20251224
  Transmission Date: 20260117
  Serious: Yes (Hospitalization, Disabling, Other)
  Sender: GLAXOSMITHKLINE
  Company Number: CA-GSK-CA2025AMR000426

PATIENT
  Age: 72 Year
  Sex: Male

DRUGS (68)
  1. ADVAIR HFA [Suspect]
     Active Substance: FLUTICASONE PROPIONATE\SALMETEROL XINAFOATE
     Indication: Eosinophilic granulomatosis with polyangiitis
     Dosage: 1 DF, BID
  2. ADVAIR HFA [Suspect]
     Active Substance: FLUTICASONE PROPIONATE\SALMETEROL XINAFOATE
     Dosage: 10 MG, BID
  3. ADVAIR HFA [Suspect]
     Active Substance: FLUTICASONE PROPIONATE\SALMETEROL XINAFOATE
     Dosage: 5 MG, BID
  4. ADVAIR HFA [Suspect]
     Active Substance: FLUTICASONE PROPIONATE\SALMETEROL XINAFOATE
     Dosage: 5 MG
  5. ADVAIR HFA [Suspect]
     Active Substance: FLUTICASONE PROPIONATE\SALMETEROL XINAFOATE
     Dosage: 10 MG
  6. ADVAIR HFA [Suspect]
     Active Substance: FLUTICASONE PROPIONATE\SALMETEROL XINAFOATE
     Dosage: 1 DF
  7. ALBUTEROL [Suspect]
     Active Substance: ALBUTEROL
     Indication: Eosinophilic granulomatosis with polyangiitis
     Dosage: UNK
  8. VENTOLIN [Suspect]
     Active Substance: ALBUTEROL SULFATE
     Indication: Eosinophilic granulomatosis with polyangiitis
     Dosage: UNK
  9. FLUTICASONE FUROATE [Suspect]
     Active Substance: FLUTICASONE FUROATE
     Indication: Eosinophilic granulomatosis with polyangiitis
     Dosage: UNK
  10. FLUTICASONE PROPIONATE [Suspect]
     Active Substance: FLUTICASONE PROPIONATE
     Indication: Eosinophilic granulomatosis with polyangiitis
     Dosage: UNK
  11. FLUTICASONE PROPIONATE\SALMETEROL XINAFOATE [Suspect]
     Active Substance: FLUTICASONE PROPIONATE\SALMETEROL XINAFOATE
     Indication: Eosinophilic granulomatosis with polyangiitis
     Dosage: 1 DF
     Route: 065
  12. FLUTICASONE PROPIONATE\SALMETEROL XINAFOATE [Suspect]
     Active Substance: FLUTICASONE PROPIONATE\SALMETEROL XINAFOATE
     Dosage: 5 MG
     Route: 065
  13. FLUTICASONE PROPIONATE\SALMETEROL XINAFOATE [Suspect]
     Active Substance: FLUTICASONE PROPIONATE\SALMETEROL XINAFOATE
     Dosage: 100 MG
     Route: 065
  14. FLUTICASONE PROPIONATE\SALMETEROL XINAFOATE [Suspect]
     Active Substance: FLUTICASONE PROPIONATE\SALMETEROL XINAFOATE
     Dosage: 2 DF
     Route: 065
  15. BEVACIZUMAB [Suspect]
     Active Substance: BEVACIZUMAB
     Indication: Product used for unknown indication
     Dosage: 175 MG, QD
  16. BEVACIZUMAB [Suspect]
     Active Substance: BEVACIZUMAB
     Dosage: 120 MG, QD
  17. BICALUTAMIDE [Suspect]
     Active Substance: BICALUTAMIDE
     Indication: Product used for unknown indication
     Dosage: 50 MG, QD
  18. CALCIUM [Suspect]
     Active Substance: CALCIUM
     Indication: Eosinophilic granulomatosis with polyangiitis
     Dosage: UNK
     Route: 065
  19. CALCIUM [Suspect]
     Active Substance: CALCIUM
     Dosage: UNK
  20. FOLIC ACID [Suspect]
     Active Substance: FOLIC ACID
     Indication: Eosinophilic granulomatosis with polyangiitis
     Dosage: 5 MG, QD
  21. FOSAMAX [Suspect]
     Active Substance: ALENDRONATE SODIUM
     Indication: Product used for unknown indication
     Dosage: 70 MG
  22. LANSOPRAZOLE [Suspect]
     Active Substance: LANSOPRAZOLE
     Indication: Product used for unknown indication
     Dosage: 30 MG, QD (CAPSULE DELAYED RELEASE)
     Route: 065
  23. LANSOPRAZOLE [Suspect]
     Active Substance: LANSOPRAZOLE
     Dosage: 30 MG
     Route: 065
  24. METHOTREXATE [Suspect]
     Active Substance: METHOTREXATE
     Indication: Product used for unknown indication
     Dosage: 7.5 MG
  25. METHOTREXATE [Suspect]
     Active Substance: METHOTREXATE
     Dosage: 15 MG
  26. OMNARIS [Suspect]
     Active Substance: CICLESONIDE
     Indication: Product used for unknown indication
     Dosage: 2 DF, SPRAY METERED DOSE
  27. OMNARIS [Suspect]
     Active Substance: CICLESONIDE
     Dosage: 2 DF, SPRAY METERED DOSE
  28. OMNARIS [Suspect]
     Active Substance: CICLESONIDE
     Dosage: UNK
     Route: 065
  29. PREDNISONE [Suspect]
     Active Substance: PREDNISONE
     Indication: Product used for unknown indication
     Dosage: 7.5 MG, QD
  30. PREDNISONE [Suspect]
     Active Substance: PREDNISONE
     Dosage: 5 MG, QD
  31. PREDNISONE [Suspect]
     Active Substance: PREDNISONE
     Dosage: 2 MG, QD
  32. PREDNISONE [Suspect]
     Active Substance: PREDNISONE
     Dosage: 10 MG, QD
  33. RAMIPRIL [Suspect]
     Active Substance: RAMIPRIL
     Indication: Product used for unknown indication
     Dosage: 10 MG
  34. SODIUM BICARBONATE\SODIUM CHLORIDE [Suspect]
     Active Substance: SODIUM BICARBONATE\SODIUM CHLORIDE
     Indication: Product used for unknown indication
     Dosage: UNK, SOLUTION NASAL
  35. SODIUM BICARBONATE [Suspect]
     Active Substance: SODIUM BICARBONATE
     Indication: Product used for unknown indication
     Dosage: UNK
  36. SODIUM BICARBONATE [Suspect]
     Active Substance: SODIUM BICARBONATE
     Dosage: UNK
     Route: 065
  37. GOSERELIN [Suspect]
     Active Substance: GOSERELIN
     Indication: Product used for unknown indication
     Dosage: UNK
  38. ALENDRONATE SODIUM [Suspect]
     Active Substance: ALENDRONATE SODIUM
     Indication: Product used for unknown indication
     Dosage: 70 MG, WE
  39. ALENDRONATE SODIUM [Suspect]
     Active Substance: ALENDRONATE SODIUM
     Dosage: 70 MG
     Route: 065
  40. ALENDRONATE SODIUM [Suspect]
     Active Substance: ALENDRONATE SODIUM
     Dosage: 50 MG, WE
  41. BROMHEXINE HYDROCHLORIDE [Suspect]
     Active Substance: BROMHEXINE HYDROCHLORIDE
     Indication: Eosinophilic granulomatosis with polyangiitis
     Dosage: UNK
  42. CALCIUM CARBONATE [Suspect]
     Active Substance: CALCIUM CARBONATE
     Indication: Eosinophilic granulomatosis with polyangiitis
     Dosage: UNK
     Route: 065
  43. CALCIUM GLUCONATE [Suspect]
     Active Substance: CALCIUM GLUCONATE
     Indication: Product used for unknown indication
     Dosage: UNK
     Route: 065
  44. CICLESONIDE [Suspect]
     Active Substance: CICLESONIDE
     Indication: Product used for unknown indication
     Dosage: 2 DF
  45. CYCLOPHOSPHAMIDE [Suspect]
     Active Substance: CYCLOPHOSPHAMIDE
     Indication: Product used for unknown indication
     Dosage: 175 MG
  46. CYCLOPHOSPHAMIDE [Suspect]
     Active Substance: CYCLOPHOSPHAMIDE
     Dosage: 1200 MG
  47. ERGOCALCIFEROL [Suspect]
     Active Substance: ERGOCALCIFEROL
     Indication: Product used for unknown indication
     Dosage: UNK
     Route: 065
  48. FOLATE SODIUM [Suspect]
     Active Substance: FOLATE SODIUM
     Indication: Product used for unknown indication
     Dosage: 5 MG
     Route: 065
  49. IOBITRIDOL [Suspect]
     Active Substance: IOBITRIDOL
     Indication: Product used for unknown indication
     Dosage: UNK
     Route: 065
  50. METHOTREXATE SODIUM [Suspect]
     Active Substance: METHOTREXATE SODIUM
     Indication: Product used for unknown indication
     Dosage: 20 MG
  51. METHOTREXATE SODIUM [Suspect]
     Active Substance: METHOTREXATE SODIUM
     Dosage: 25 MG, WE
     Route: 065
  52. METHOTREXATE SODIUM [Suspect]
     Active Substance: METHOTREXATE SODIUM
     Dosage: 7.5 MG, WE
     Route: 065
  53. METHOTREXATE SODIUM [Suspect]
     Active Substance: METHOTREXATE SODIUM
     Dosage: UNK
     Route: 065
  54. METHOTREXATE SODIUM [Suspect]
     Active Substance: METHOTREXATE SODIUM
     Dosage: 25 MG
     Route: 065
  55. METHOTREXATE SODIUM [Suspect]
     Active Substance: METHOTREXATE SODIUM
     Dosage: 15 MG
     Route: 065
  56. METHOTREXATE SODIUM [Suspect]
     Active Substance: METHOTREXATE SODIUM
     Dosage: 20 MG
     Route: 065
  57. METHOTREXATE SODIUM [Suspect]
     Active Substance: METHOTREXATE SODIUM
     Dosage: 7.5 MG
     Route: 065
  58. METHOTREXATE SODIUM [Suspect]
     Active Substance: METHOTREXATE SODIUM
     Dosage: 15 MG, WE
     Route: 065
  59. METHOTREXATE SODIUM [Suspect]
     Active Substance: METHOTREXATE SODIUM
     Dosage: UNK
     Route: 065
  60. METHOTREXATE SODIUM [Suspect]
     Active Substance: METHOTREXATE SODIUM
     Dosage: 7.5 MG
     Route: 065
  61. PREDNISONE ACETATE [Suspect]
     Active Substance: PREDNISONE ACETATE
     Indication: Product used for unknown indication
     Dosage: 10 MG, QD
     Route: 065
  62. PREDNISONE ACETATE [Suspect]
     Active Substance: PREDNISONE ACETATE
     Dosage: 2 MG, QD
     Route: 065
  63. PREDNISONE ACETATE [Suspect]
     Active Substance: PREDNISONE ACETATE
     Dosage: 5 MG, QD
     Route: 065
  64. PREDNISONE ACETATE [Suspect]
     Active Substance: PREDNISONE ACETATE
     Dosage: 7.5 MG, QD
     Route: 065
  65. PREDNISONE ACETATE [Suspect]
     Active Substance: PREDNISONE ACETATE
     Dosage: 1 MG
     Route: 065
  66. VITAMIN D [Suspect]
     Active Substance: VITAMIN D NOS
     Indication: Product used for unknown indication
     Dosage: UNK
     Route: 065
  67. NUCALA [Concomitant]
     Active Substance: MEPOLIZUMAB
     Indication: Eosinophilic granulomatosis with polyangiitis
     Dosage: 300 MG, WE
  68. VITAMIN D2 [Concomitant]
     Active Substance: ERGOCALCIFEROL
     Indication: Product used for unknown indication
     Dosage: UNK
     Route: 065

REACTIONS (35)
  - Airway remodelling [Unknown]
  - Asthma [Unknown]
  - Atopy [Unknown]
  - Blood immunoglobulin E increased [Unknown]
  - Cardiac septal defect [Unknown]
  - Central nervous system mass [Unknown]
  - Chronic sinusitis [Unknown]
  - Condition aggravated [Unknown]
  - Eosinophil count decreased [Unknown]
  - Eosinophil count increased [Unknown]
  - Eosinophilic granulomatosis with polyangiitis [Unknown]
  - Eosinophilic myocarditis [Unknown]
  - Eosinophilic pneumonia [Unknown]
  - Haematuria [Unknown]
  - Haemorrhage [Unknown]
  - Hypertension [Unknown]
  - Lacrimation increased [Unknown]
  - Lymphopenia [Unknown]
  - Memory impairment [Unknown]
  - Microangiopathy [Unknown]
  - Nasal polyps [Unknown]
  - Nodule [Unknown]
  - Obesity [Unknown]
  - Obstructive airways disorder [Unknown]
  - Pneumonia [Unknown]
  - Prostate cancer [Unknown]
  - Productive cough [Unknown]
  - Renal disorder [Unknown]
  - Respiratory symptom [Unknown]
  - Respiratory tract infection [Unknown]
  - Ventricular hypokinesia [Unknown]
  - Viral infection [Unknown]
  - Confusional state [Unknown]
  - Wall motion score index abnormal [Unknown]
  - Product use in unapproved indication [Unknown]
